FAERS Safety Report 6372101-2 (Version None)
Quarter: 2009Q3

REPORT INFORMATION
  Report Type: 
  Country: None (occurrence: None)
  Receive Date: 20090917
  Receipt Date: 20090904
  Transmission Date: 20100115
  Serious: Yes (Hospitalization)
  Sender: FDA-Public Use
  Company Number: ADR19002009

PATIENT
  Sex: Female

DRUGS (2)
  1. SALBUTAMOL (MFR: UNKNOWN) [Suspect]
     Indication: RESPIRATORY RATE DECREASED
  2. PREDNISOLONE [Concomitant]

REACTIONS (18)
  - ABDOMINAL PAIN UPPER [None]
  - AKINESIA [None]
  - BLOOD PRESSURE DECREASED [None]
  - CAESAREAN SECTION [None]
  - CARDIOMYOPATHY [None]
  - CHEST PAIN [None]
  - CONDUCTION DISORDER [None]
  - COUGH [None]
  - DIZZINESS [None]
  - DRUG EXPOSURE DURING PREGNANCY [None]
  - DYSKINESIA [None]
  - HEART TRANSPLANT [None]
  - INTRACARDIAC THROMBUS [None]
  - MITRAL VALVE INCOMPETENCE [None]
  - NAUSEA [None]
  - OEDEMA PERIPHERAL [None]
  - TACHYCARDIA [None]
  - TRICUSPID VALVE INCOMPETENCE [None]
